FAERS Safety Report 6529968-4 (Version None)
Quarter: 2010Q1

REPORT INFORMATION
  Report Type: 
  Country: None (occurrence: None)
  Receive Date: 20100104
  Receipt Date: 20091218
  Transmission Date: 20100710
  Serious: No
  Sender: FDA-Public Use
  Company Number: 003343

PATIENT
  Age: 22 Year
  Sex: Female

DRUGS (4)
  1. KEPPRA [Suspect]
     Indication: EPILEPSY
     Dosage: ORAL
     Route: 048
  2. TRILEPTAL [Concomitant]
  3. VITAMIN TAB [Concomitant]
  4. FOLIC ACID [Concomitant]

REACTIONS (3)
  - ANAEMIA [None]
  - MATERNAL DRUGS AFFECTING FOETUS [None]
  - PREGNANCY [None]
